FAERS Safety Report 9800110 (Version 3)
Quarter: 2015Q3

REPORT INFORMATION
  Report Type: Spontaneous
  Country: US (occurrence: US)
  Receive Date: 20140106
  Receipt Date: 20150806
  Transmission Date: 20151125
  Serious: No
  Sender: FDA-Public Use
  Company Number: US-GILEAD-2010-0032542

PATIENT
  Age: 55 Year
  Sex: Female

DRUGS (8)
  1. LETAIRIS [Suspect]
     Active Substance: AMBRISENTAN
     Indication: PULMONARY ARTERIAL HYPERTENSION
     Route: 048
     Dates: start: 20091005
  2. WARFARIN [Concomitant]
     Active Substance: WARFARIN
  3. COREG [Concomitant]
     Active Substance: CARVEDILOL
  4. REVATIO [Concomitant]
     Active Substance: SILDENAFIL CITRATE
  5. NASONEX [Concomitant]
     Active Substance: MOMETASONE FUROATE
  6. DIOVAN [Concomitant]
     Active Substance: VALSARTAN
  7. DIGOXIN. [Concomitant]
     Active Substance: DIGOXIN
  8. NEXIUM [Concomitant]
     Active Substance: ESOMEPRAZOLE MAGNESIUM

REACTIONS (4)
  - Chest pain [Recovered/Resolved]
  - Fatigue [Recovered/Resolved]
  - Headache [Recovered/Resolved]
  - Accidental overdose [Recovered/Resolved]

NARRATIVE: CASE EVENT DATE: 20101004
